FAERS Safety Report 9786715 (Version 2)
Quarter: 2014Q1

REPORT INFORMATION
  Report Type: Report from Study
  Country: DE (occurrence: DE)
  Receive Date: 20131227
  Receipt Date: 20140319
  Transmission Date: 20141002
  Serious: Yes (Hospitalization)
  Sender: FDA-Public Use
  Company Number: DE-ABBVIE-13P-062-1182212-00

PATIENT
  Sex: Male

DRUGS (2)
  1. HUMIRA [Suspect]
     Indication: RHEUMATOID ARTHRITIS
     Route: 058
     Dates: start: 20110901, end: 20131102
  2. HUMIRA [Suspect]
     Route: 058
     Dates: end: 20140113

REACTIONS (2)
  - Irritable bowel syndrome [Not Recovered/Not Resolved]
  - Lactose intolerance [Not Recovered/Not Resolved]
